FAERS Safety Report 5378751-4 (Version None)
Quarter: 2007Q3

REPORT INFORMATION
  Report Type: 
  Country: None (occurrence: None)
  Receive Date: 20070705
  Receipt Date: 20070703
  Transmission Date: 20080115
  Serious: Yes (Hospitalization)
  Sender: FDA-Public Use
  Company Number: B0477565A

PATIENT
  Age: 21 Year
  Sex: Female

DRUGS (7)
  1. PAXIL [Suspect]
     Indication: DEPRESSION
     Dosage: 20MG PER DAY
     Route: 048
     Dates: start: 20061014, end: 20061026
  2. NAUZELIN [Concomitant]
     Route: 048
  3. AMOBAN [Concomitant]
     Route: 048
  4. CHINESE MEDICINE [Concomitant]
     Route: 048
  5. CHINESE MEDICINE [Concomitant]
     Route: 048
  6. TOLEDOMIN [Concomitant]
     Route: 048
  7. DORAL [Concomitant]
     Route: 048

REACTIONS (3)
  - INTENTIONAL OVERDOSE [None]
  - SELF INJURIOUS BEHAVIOUR [None]
  - SUICIDE ATTEMPT [None]
